FAERS Safety Report 6529492-9 (Version None)
Quarter: 2010Q1

REPORT INFORMATION
  Report Type: 
  Country: None (occurrence: None)
  Receive Date: 20100107
  Receipt Date: 20091229
  Transmission Date: 20100710
  Serious: Yes (Other)
  Sender: FDA-Public Use
  Company Number: PHEH2009US06465

PATIENT
  Sex: Female

DRUGS (5)
  1. RECLAST [Suspect]
     Dosage: UNK
     Dates: start: 20090401
  2. RECLAST [Suspect]
     Dosage: UNK
     Dates: start: 20090416
  3. ARIMIDEX [Concomitant]
     Dosage: 1 MG, UNK
  4. SYNTHROID [Concomitant]
     Dosage: 112 MCG, UNK
  5. BENADRYL ^WARNER-LAMBERT^               /USA/ [Concomitant]

REACTIONS (6)
  - ARTHRALGIA [None]
  - DYSPNOEA [None]
  - EYE SWELLING [None]
  - MYALGIA [None]
  - RASH [None]
  - SWELLING FACE [None]
